FAERS Safety Report 7645939-9 (Version None)
Quarter: 2011Q3

REPORT INFORMATION
  Report Type: 
  Country: None (occurrence: None)
  Receive Date: 20110729
  Receipt Date: 20110727
  Transmission Date: 20111222
  Serious: Yes (Hospitalization)
  Sender: FDA-Public Use
  Company Number: FR-MERCK-1107FRA00134

PATIENT
  Age: 14 Week
  Sex: Female

DRUGS (2)
  1. STROMECTOL [Suspect]
     Indication: ACARODERMATITIS
     Route: 048
     Dates: start: 20110524, end: 20110524
  2. BENZYL BENZOATE [Suspect]
     Indication: ACARODERMATITIS
     Route: 061
     Dates: end: 20110524

REACTIONS (1)
  - CYTOLYTIC HEPATITIS [None]
